FAERS Safety Report 21717821 (Version 5)
Quarter: 2023Q1

REPORT INFORMATION
  Report Type: Spontaneous
  Country: US (occurrence: US)
  Receive Date: 20221212
  Receipt Date: 20230201
  Transmission Date: 20230417
  Serious: Yes (Hospitalization, Other)
  Sender: FDA-Public Use
  Company Number: US-ALLERGAN-2240806US

PATIENT
  Sex: Female
  Weight: 103.41 kg

DRUGS (16)
  1. QULIPTA [Suspect]
     Active Substance: ATOGEPANT
     Indication: Migraine
     Dosage: UNK, QD
     Route: 048
     Dates: start: 20230104, end: 202301
  2. QULIPTA [Suspect]
     Active Substance: ATOGEPANT
     Dosage: UNK, QD
     Route: 048
     Dates: start: 20211101, end: 202208
  3. UBRELVY [Concomitant]
     Active Substance: UBROGEPANT
  4. METHOTREXATE [Concomitant]
     Active Substance: METHOTREXATE
  5. LASIX [Concomitant]
     Active Substance: FUROSEMIDE
     Dosage: 4 MG
  6. PLAVIX [Concomitant]
     Active Substance: CLOPIDOGREL BISULFATE
     Indication: Anticoagulant therapy
  7. ATORVASTATIN CALCIUM [Concomitant]
     Active Substance: ATORVASTATIN CALCIUM
     Indication: Blood cholesterol
     Dosage: 40 MG
  8. ASPIRIN [Concomitant]
     Active Substance: ASPIRIN
     Indication: Blood disorder
     Dosage: 80 MG
  9. FOLIC ACID [Concomitant]
     Active Substance: FOLIC ACID
  10. POTASSIUM CHLORIDE [Concomitant]
     Active Substance: POTASSIUM CHLORIDE
  11. VITAMIN D3 [Concomitant]
     Active Substance: CHOLECALCIFEROL
     Dosage: 2000 UNITS
  12. OXYCODONE [Concomitant]
     Active Substance: OXYCODONE
     Indication: Pain
  13. ALBUTEROL SULFATE [Concomitant]
     Active Substance: ALBUTEROL SULFATE
     Dosage: 90 UNK, 2 PUFFS.
  14. PREDNISOLONE [Concomitant]
     Active Substance: PREDNISOLONE
     Dosage: UNK, PRN,AC 1%
  15. DICLOFENAC [Concomitant]
     Active Substance: DICLOFENAC
     Indication: Rheumatoid arthritis
     Dosage: 1 %
  16. LAMOTRIGINE [Concomitant]
     Active Substance: LAMOTRIGINE
     Dosage: 150 MG

REACTIONS (7)
  - Transient ischaemic attack [Recovered/Resolved]
  - Arthritis [Recovered/Resolved]
  - Infection [Unknown]
  - Cellulitis [Recovered/Resolved]
  - Induration [Recovering/Resolving]
  - Migraine [Unknown]
  - Headache [Not Recovered/Not Resolved]

NARRATIVE: CASE EVENT DATE: 20220622
